FAERS Safety Report 5721514-8 (Version None)
Quarter: 2008Q2

REPORT INFORMATION
  Report Type: 
  Country: None (occurrence: None)
  Receive Date: 20080429
  Receipt Date: 20080422
  Transmission Date: 20081010
  Serious: Yes (Hospitalization)
  Sender: FDA-Public Use
  Company Number: FR-WYE-G01442008

PATIENT
  Sex: Female

DRUGS (7)
  1. EFFEXOR [Suspect]
     Indication: ANXIETY
     Route: 048
  2. TANAKAN [Concomitant]
     Indication: VENOUS STASIS
     Route: 048
  3. OXAZEPAM [Concomitant]
     Indication: ANXIETY
     Route: 048
  4. SPAGULAX [Concomitant]
     Indication: CONSTIPATION
     Route: 048
  5. PREVISCAN [Interacting]
     Indication: PULMONARY EMBOLISM
     Dosage: 0.75 TABLET ON EVEN DATES AND 0.5 TABLET ON ODD DATES
     Route: 048
     Dates: start: 20080217, end: 20080304
  6. PREVISCAN [Interacting]
     Dosage: UNKNOWN
     Route: 048
     Dates: start: 20080101
  7. ACTONEL [Concomitant]
     Indication: OSTEOPOROSIS
     Route: 048

REACTIONS (4)
  - ANAEMIA [None]
  - BREAST HAEMATOMA [None]
  - DRUG INTERACTION [None]
  - OVERDOSE [None]
